FAERS Safety Report 9284986 (Version 1)
Quarter: 2013Q2

REPORT INFORMATION
  Report Type: Spontaneous
  Country: AR (occurrence: AR)
  Receive Date: 20130513
  Receipt Date: 20130513
  Transmission Date: 20140414
  Serious: Yes (Other)
  Sender: FDA-Public Use
  Company Number: PHHY2013AR046677

PATIENT
  Age: 64 Year
  Sex: Female

DRUGS (2)
  1. FEMARA [Suspect]
     Indication: BREAST CANCER
     Dosage: 2.5 MG, DAILY
     Route: 048
     Dates: start: 2008, end: 201110
  2. FEMARA [Suspect]
     Dosage: 2.5 MG, DAILY
     Route: 048

REACTIONS (9)
  - Melaena [Unknown]
  - Nodule [Unknown]
  - Cataract [Unknown]
  - Blood urea abnormal [Unknown]
  - Haemorrhage [Unknown]
  - Abasia [Unknown]
  - Osteopenia [Not Recovered/Not Resolved]
  - Myalgia [Not Recovered/Not Resolved]
  - Local swelling [Unknown]
